FAERS Safety Report 16754315 (Version 6)
Quarter: 2021Q2

REPORT INFORMATION
  Report Type: Spontaneous
  Country: US (occurrence: US)
  Receive Date: 20190829
  Receipt Date: 20210409
  Transmission Date: 20210716
  Serious: Yes (Hospitalization, Other)
  Sender: FDA-Public Use
  Company Number: US-PFIZER INC-2019371944

PATIENT
  Age: 58 Year
  Sex: Male
  Weight: 81.05 kg

DRUGS (6)
  1. NAPROXEN. [Concomitant]
     Active Substance: NAPROXEN
     Indication: PAIN
  2. LYRICA [Suspect]
     Active Substance: PREGABALIN
     Indication: PAIN IN EXTREMITY
     Dosage: 150 MG, 3X/DAY (ONE CAPSULE THREE TIMES A DAY BY MOUTH)
     Route: 048
  3. ALEVE [Concomitant]
     Active Substance: NAPROXEN SODIUM
     Indication: PAIN
  4. TRAMADOL. [Concomitant]
     Active Substance: TRAMADOL
     Indication: NECK PAIN
     Dosage: 150 MG
  5. ADVIL [Concomitant]
     Active Substance: IBUPROFEN
     Indication: PAIN
  6. FENTANYL. [Concomitant]
     Active Substance: FENTANYL
     Indication: PAIN
     Dosage: UNK

REACTIONS (11)
  - Rheumatoid arthritis [Unknown]
  - Condition aggravated [Not Recovered/Not Resolved]
  - Feeling abnormal [Unknown]
  - Pain in extremity [Not Recovered/Not Resolved]
  - Psoriatic arthropathy [Unknown]
  - Memory impairment [Unknown]
  - Shock [Unknown]
  - Weight decreased [Unknown]
  - Respiratory fume inhalation disorder [Not Recovered/Not Resolved]
  - Fibromyalgia [Unknown]
  - Osteoarthritis [Unknown]

NARRATIVE: CASE EVENT DATE: 20201121
